FAERS Safety Report 9683982 (Version 1)
Quarter: 2013Q4

REPORT INFORMATION
  Report Type: Spontaneous
  Country: US (occurrence: US)
  Receive Date: 20131112
  Receipt Date: 20131112
  Transmission Date: 20140711
  Serious: Yes (Disabling)
  Sender: FDA-Public Use
  Company Number: US-ACTAVIS-2013-19850

PATIENT
  Age: 51 Year
  Sex: Female

DRUGS (1)
  1. NORCO 5/325 (WATSON LABORATORIES) [Suspect]
     Indication: ARTHRALGIA
     Dosage: 1/2 TAB, Q4H
     Route: 048
     Dates: start: 201308, end: 201309

REACTIONS (1)
  - Disability [Not Recovered/Not Resolved]
